FAERS Safety Report 9068266 (Version 1)
Quarter: 2013Q1

REPORT INFORMATION
  Report Type: Spontaneous
  Country: AR (occurrence: AR)
  Receive Date: 20130128
  Receipt Date: 20130128
  Transmission Date: 20140127
  Serious: Yes (Other)
  Sender: FDA-Public Use
  Company Number: AR-PFIZER INC-2013031947

PATIENT
  Age: 66 Year
  Sex: Female

DRUGS (6)
  1. RAPAMUNE [Suspect]
     Indication: RENAL TRANSPLANT
     Dosage: 1 MG, 3XWEEK
     Route: 048
     Dates: start: 20110117, end: 201211
  2. RAPAMUNE [Suspect]
     Dosage: UNK
     Dates: start: 201212
  3. DELTISONA B [Concomitant]
     Dosage: UNK
  4. MYFORTIC [Concomitant]
     Dosage: UNK
  5. ZOCOR [Concomitant]
     Dosage: UNK
  6. ASPIRINETAS [Concomitant]
     Dosage: UNK

REACTIONS (2)
  - Hip fracture [Recovering/Resolving]
  - Fall [Recovering/Resolving]
